FAERS Safety Report 23756256 (Version 1)
Quarter: 2024Q2

REPORT INFORMATION
  Report Type: Spontaneous
  Country: US (occurrence: None)
  Receive Date: 20240418
  Receipt Date: 20240418
  Transmission Date: 20240716
  Serious: Yes (Hospitalization)
  Sender: FDA-Public Use
  Company Number: None

PATIENT
  Age: 67 Year
  Sex: Male
  Weight: 58.9 kg

DRUGS (2)
  1. MIRTAZAPINE [Suspect]
     Active Substance: MIRTAZAPINE
     Indication: Depression
     Dosage: 15 MG HS PO
     Route: 048
     Dates: start: 20231003, end: 20231027
  2. DULOXETINE [Suspect]
     Active Substance: DULOXETINE
     Dosage: 30 MG BID PO?
     Route: 048
     Dates: start: 20231003, end: 20231027

REACTIONS (3)
  - Pruritus [None]
  - Rash [None]
  - Throat tightness [None]

NARRATIVE: CASE EVENT DATE: 20231027
